FAERS Safety Report 5312494-8 (Version None)
Quarter: 2007Q2

REPORT INFORMATION
  Report Type: 
  Country: None (occurrence: None)
  Receive Date: 20070430
  Receipt Date: 20070103
  Transmission Date: 20071010
  Serious: No
  Sender: FDA-Public Use
  Company Number: 2007UW00149

PATIENT
  Age: 63 Year
  Sex: Female
  Weight: 73.5 kg

DRUGS (8)
  1. NEXIUM [Suspect]
     Indication: DYSPEPSIA
     Route: 048
     Dates: start: 20061201
  2. ASPIRIN [Concomitant]
  3. TOPROL-XL [Concomitant]
  4. MAGNESIUM OXIDE [Concomitant]
  5. VITAMIN [Concomitant]
  6. CALCIUM CHLORIDE [Concomitant]
  7. CLONAZEPAM [Concomitant]
  8. DIGITEK [Concomitant]

REACTIONS (1)
  - BLOOD GLUCOSE INCREASED [None]
